FAERS Safety Report 20056643 (Version 2)
Quarter: 2021Q4

REPORT INFORMATION
  Report Type: Spontaneous
  Country: JP (occurrence: JP)
  Receive Date: 20211111
  Receipt Date: 20211227
  Transmission Date: 20220303
  Serious: Yes (Hospitalization, Other)
  Sender: FDA-Public Use
  Company Number: JP-ONO-2021JP027788

PATIENT
  Age: 75 Year
  Sex: Male
  Weight: 53.8 kg

DRUGS (5)
  1. KYPROLIS [Suspect]
     Active Substance: CARFILZOMIB
     Indication: Plasma cell myeloma
     Dosage: 20 MG
     Route: 041
     Dates: start: 20170406, end: 20170509
  2. PENTAMIDINE [Concomitant]
     Active Substance: PENTAMIDINE
     Indication: Prophylaxis
     Dosage: 300 MG, EVERYDAY
     Route: 055
     Dates: start: 20170313
  3. YOUPATCH [Concomitant]
     Dosage: 2 DF, EVERYDAY
     Route: 062
     Dates: start: 20170427
  4. REVLIMID [Concomitant]
     Active Substance: LENALIDOMIDE
     Indication: Plasma cell myeloma
     Dosage: 25 MG
     Route: 048
     Dates: start: 20170406, end: 20170515
  5. DEXAMETHASONE SODIUM PHOSPHATE [Concomitant]
     Active Substance: DEXAMETHASONE SODIUM PHOSPHATE
     Indication: Plasma cell myeloma
     Dosage: 39.6 MG
     Route: 041
     Dates: start: 20170406, end: 20170509

REACTIONS (4)
  - Cardiac failure [Recovered/Resolved]
  - Pneumonia [Recovered/Resolved]
  - Cerebral infarction [Unknown]
  - Monoplegia [Unknown]

NARRATIVE: CASE EVENT DATE: 20170407
